FAERS Safety Report 8346930-X (Version None)
Quarter: 2012Q2

REPORT INFORMATION
  Report Type: 
  Country: None (occurrence: None)
  Receive Date: 20120509
  Receipt Date: 20120508
  Transmission Date: 20120825
  Serious: Yes (Other)
  Sender: FDA-Public Use
  Company Number: PHHY2011JP75878

PATIENT
  Age: 23 Year
  Sex: Male
  Weight: 40.5 kg

DRUGS (4)
  1. PREDNISOLONE [Concomitant]
     Dosage: 40 MG, DAILY
  2. COTRIM [Suspect]
     Indication: NOCARDIOSIS
     Dosage: UNK UKN, UNK
  3. INFLIXIMAB [Concomitant]
     Indication: CROHN'S DISEASE
     Dosage: 200 MG
  4. PREDNISOLONE [Concomitant]
     Dosage: 50 MG, DAILY

REACTIONS (6)
  - RHABDOMYOLYSIS [None]
  - ALANINE AMINOTRANSFERASE INCREASED [None]
  - FATIGUE [None]
  - BACK PAIN [None]
  - ASPARTATE AMINOTRANSFERASE INCREASED [None]
  - NAUSEA [None]
